FAERS Safety Report 15211782 (Version 1)
Quarter: 2018Q3

REPORT INFORMATION
  Report Type: Spontaneous
  Country: DE (occurrence: DE)
  Receive Date: 20180729
  Receipt Date: 20180729
  Transmission Date: 20181010
  Serious: Yes (Life-Threatening)
  Sender: FDA-Public Use
  Company Number: PHHY2018DE056320

PATIENT
  Age: 38 Year
  Sex: Male
  Weight: 73 kg

DRUGS (2)
  1. CANNABIS [Concomitant]
     Active Substance: CANNABIS SATIVA SUBSP. INDICA TOP
     Indication: PRODUCT USED FOR UNKNOWN INDICATION
  2. IRBESARTAN. [Suspect]
     Active Substance: IRBESARTAN
     Indication: RENAL HYPERTENSION
     Dosage: 300 MG, QD
     Route: 048
     Dates: start: 20180501, end: 20180503

REACTIONS (4)
  - Tachycardia [Recovered/Resolved]
  - Blood pressure increased [Recovered/Resolved]
  - Palpitations [Recovered/Resolved]
  - Product substitution issue [Unknown]

NARRATIVE: CASE EVENT DATE: 20180501
